FAERS Safety Report 19280556 (Version 31)
Quarter: 2023Q4

REPORT INFORMATION
  Report Type: Spontaneous
  Country: CA (occurrence: CA)
  Receive Date: 20210521
  Receipt Date: 20231204
  Transmission Date: 20240109
  Serious: Yes (Other)
  Sender: FDA-Public Use
  Company Number: CA-CELLTRION INC.-2021CA001211

PATIENT

DRUGS (24)
  1. INFLECTRA [Suspect]
     Active Substance: INFLIXIMAB-DYYB
     Indication: Colitis ulcerative
     Dosage: 500 MG, EVERY 6 WEEKS
     Route: 042
     Dates: start: 20210218
  2. INFLECTRA [Suspect]
     Active Substance: INFLIXIMAB-DYYB
     Dosage: 500 MG, EVERY 6 WEEKS
     Route: 042
     Dates: start: 20210331
  3. INFLECTRA [Suspect]
     Active Substance: INFLIXIMAB-DYYB
     Dosage: 500 MG, EVERY 6 WEEKS
     Route: 042
     Dates: start: 20211214
  4. INFLECTRA [Suspect]
     Active Substance: INFLIXIMAB-DYYB
     Dosage: 500 MG, EVERY 6 WEEKS
     Route: 042
     Dates: start: 20211229
  5. INFLECTRA [Suspect]
     Active Substance: INFLIXIMAB-DYYB
     Dosage: 500 MG, EVERY 6 WEEKS
     Route: 042
     Dates: start: 20221130
  6. INFLECTRA [Suspect]
     Active Substance: INFLIXIMAB-DYYB
     Dosage: UNK
  7. INFLECTRA [Suspect]
     Active Substance: INFLIXIMAB-DYYB
     Dosage: UNK
  8. INFLECTRA [Suspect]
     Active Substance: INFLIXIMAB-DYYB
     Dosage: 500 MG, EVERY 6 WEEKS
     Route: 042
     Dates: start: 20230515
  9. INFLECTRA [Suspect]
     Active Substance: INFLIXIMAB-DYYB
     Dosage: UNK
     Route: 042
  10. INFLECTRA [Suspect]
     Active Substance: INFLIXIMAB-DYYB
     Dosage: 500 MG, EVERY 6 WEEKS
     Route: 042
  11. INFLECTRA [Suspect]
     Active Substance: INFLIXIMAB-DYYB
     Dosage: 500 MG, EVERY 6 WEEKS
     Route: 042
     Dates: start: 20230808
  12. INFLECTRA [Suspect]
     Active Substance: INFLIXIMAB-DYYB
     Dosage: 500 MG, EVERY 6 WEEKS
     Route: 042
  13. INFLECTRA [Suspect]
     Active Substance: INFLIXIMAB-DYYB
     Dosage: 500 MG, ONCE Q 6 WEEK
  14. ATORVASTATIN [Concomitant]
     Active Substance: ATORVASTATIN
     Dosage: UNK
  15. ASPIRIN [Concomitant]
     Active Substance: ASPIRIN
     Dosage: UNK
  16. CANDESARTAN [Concomitant]
     Active Substance: CANDESARTAN
     Dosage: UNK
  17. INVOKANA [Concomitant]
     Active Substance: CANAGLIFLOZIN
     Indication: Diabetes mellitus
     Dosage: UNK
  18. METAMUCIL [Concomitant]
     Active Substance: PLANTAGO SEED
     Dosage: UNK
  19. METFORMIN [Concomitant]
     Active Substance: METFORMIN HYDROCHLORIDE
     Indication: Diabetes mellitus
     Dosage: UNK
  20. NAPROXEN [Concomitant]
     Active Substance: NAPROXEN
     Dosage: UNK
  21. OZEMPIC [Concomitant]
     Active Substance: SEMAGLUTIDE
     Dosage: UNK
  22. PRAVASTATIN [Concomitant]
     Active Substance: PRAVASTATIN
     Dosage: UNK
  23. TYLENOL [Concomitant]
     Active Substance: ACETAMINOPHEN
     Dosage: UNK
  24. VIMOVO [Concomitant]
     Active Substance: ESOMEPRAZOLE MAGNESIUM\NAPROXEN
     Dosage: UNK

REACTIONS (44)
  - Immunosuppression [Not Recovered/Not Resolved]
  - Tooth fracture [Unknown]
  - Weight decreased [Recovering/Resolving]
  - Lower respiratory tract infection bacterial [Recovering/Resolving]
  - Arthralgia [Recovering/Resolving]
  - Muscle rupture [Unknown]
  - Pharyngitis streptococcal [Unknown]
  - Arthritis [Not Recovered/Not Resolved]
  - Therapeutic response shortened [Unknown]
  - Off label use [Unknown]
  - Inappropriate schedule of product administration [Unknown]
  - Condition aggravated [Recovered/Resolved]
  - Dry throat [Unknown]
  - Malaise [Not Recovered/Not Resolved]
  - Rhinitis allergic [Not Recovered/Not Resolved]
  - Headache [Not Recovered/Not Resolved]
  - Dyspnoea [Not Recovered/Not Resolved]
  - Inflammation [Unknown]
  - Pain [Unknown]
  - Exposure to SARS-CoV-2 [Not Recovered/Not Resolved]
  - Limb injury [Not Recovered/Not Resolved]
  - Myalgia [Not Recovered/Not Resolved]
  - Nasal congestion [Not Recovered/Not Resolved]
  - Joint injury [Recovering/Resolving]
  - Fall [Unknown]
  - Illness [Unknown]
  - COVID-19 [Recovered/Resolved]
  - Oropharyngeal pain [Recovered/Resolved]
  - Nasopharyngitis [Not Recovered/Not Resolved]
  - Oropharyngeal pain [Not Recovered/Not Resolved]
  - Rhinorrhoea [Recovered/Resolved]
  - Alopecia [Not Recovered/Not Resolved]
  - Condition aggravated [Not Recovered/Not Resolved]
  - Flatulence [Unknown]
  - Discomfort [Unknown]
  - Accident [Unknown]
  - Gait disturbance [Unknown]
  - Mobility decreased [Unknown]
  - Myositis [Unknown]
  - Pulpitis dental [Unknown]
  - Nervousness [Not Recovered/Not Resolved]
  - Constipation [Not Recovered/Not Resolved]
  - Influenza [Unknown]
  - Diarrhoea [Unknown]

NARRATIVE: CASE EVENT DATE: 20210101
